FAERS Safety Report 6992843-5 (Version None)
Quarter: 2010Q3

REPORT INFORMATION
  Report Type: 
  Country: None (occurrence: None)
  Receive Date: 20100917
  Receipt Date: 20100910
  Transmission Date: 20110219
  Serious: Yes (Other)
  Sender: FDA-Public Use
  Company Number: A0881625A

PATIENT
  Age: 56 Year
  Sex: Female

DRUGS (1)
  1. ROSIGLITAZONE MALEATE [Suspect]
     Route: 048

REACTIONS (6)
  - CORONARY ARTERIAL STENT INSERTION [None]
  - DYSPNOEA [None]
  - INCREASED TENDENCY TO BRUISE [None]
  - LIMB DISCOMFORT [None]
  - PAIN [None]
  - RENAL FAILURE [None]
